FAERS Safety Report 11884209 (Version 1)
Quarter: 2016Q1

REPORT INFORMATION
  Report Type: Spontaneous
  Country: GR (occurrence: GR)
  Receive Date: 20160103
  Receipt Date: 20160103
  Transmission Date: 20160526
  Serious: Yes (Other)
  Sender: FDA-Public Use
  Company Number: GR-TEVA-622866ISR

PATIENT
  Age: 51 Year
  Sex: Male

DRUGS (5)
  1. FLUOROURACIL. [Suspect]
     Active Substance: FLUOROURACIL
     Indication: PANCREATIC CARCINOMA METASTATIC
     Dosage: 400 MG/M2 BOLUS FOLLOWED BY 2400 MG/M2 GIVEN AS A 46 HOURS CONTINUOUS INFUSION EVERY 2 WEEKS
     Route: 065
  2. GEMCITABINE [Concomitant]
     Active Substance: GEMCITABINE\GEMCITABINE HYDROCHLORIDE
     Indication: PANCREATIC CARCINOMA METASTATIC
     Dosage: 1000MG/M2 ON DAYS 1, 8 AND 15 ON 28 DAYS CYCLES
     Route: 065
  3. OXALIPLATIN. [Suspect]
     Active Substance: OXALIPLATIN
     Indication: PANCREATIC CARCINOMA METASTATIC
     Dosage: 85 MG/M2 BOLUS FOLLOWED BY 2400 MG/M2 GIVEN AS A 46 HOURS CONTINUOUS INFUSION EVERY 2 WEEKS
     Route: 065
  4. FOLINIC ACID [Suspect]
     Active Substance: LEUCOVORIN
     Indication: PANCREATIC CARCINOMA METASTATIC
     Dosage: 400 MG/M2 BOLUS FOLLOWED BY 2400 MG/M2 GIVEN AS A 46 HOURS CONTINUOUS INFUSION EVERY 2 WEEKS
     Route: 065
  5. IRINOTECAN [Suspect]
     Active Substance: IRINOTECAN
     Indication: PANCREATIC CARCINOMA METASTATIC
     Dosage: 180 MG/M2 BOLUS FOLLOWED BY 2400 MG/M2 GIVEN AS A 46 HOURS CONTINUOUS INFUSION EVERY 2 WEEKS
     Route: 065

REACTIONS (3)
  - Haematotoxicity [Unknown]
  - Steatohepatitis [Unknown]
  - Neurotoxicity [Unknown]
